FAERS Safety Report 8106272-4 (Version None)
Quarter: 2012Q1

REPORT INFORMATION
  Report Type: 
  Country: None (occurrence: None)
  Receive Date: 20120202
  Receipt Date: 20120125
  Transmission Date: 20120608
  Serious: Yes (Hospitalization)
  Sender: FDA-Public Use
  Company Number: JP-BAYER-200912123BYL

PATIENT
  Age: 74 Year
  Sex: Male
  Weight: 61 kg

DRUGS (7)
  1. NEXAVAR [Suspect]
     Indication: HEPATIC NEOPLASM MALIGNANT
     Route: 048
     Dates: start: 20090611, end: 20090624
  2. MAGMITT [Suspect]
     Indication: CONSTIPATION
     Dosage: 1980 MG (DAILY DOSE), , ORAL
     Route: 048
     Dates: start: 20090620, end: 20090721
  3. CALSLOT [Concomitant]
     Dosage: SINCE BEFORE ADMINISTRATION
     Route: 048
  4. NEXAVAR [Suspect]
     Dosage: 400 MG (DAILY DOSE), , ORAL
     Route: 048
     Dates: start: 20090810, end: 20091109
  5. RHYTHMY [Concomitant]
     Dosage: SINCE BEFORE ADMINISTRATION
     Route: 048
  6. NEXAVAR [Suspect]
     Dosage: 400 MG (DAILY DOSE), , ORAL
     Route: 048
     Dates: start: 20090625, end: 20090626
  7. ALLOPURINOL [Concomitant]
     Dosage: SINCE BEFORE ADMINISTRATION
     Route: 048

REACTIONS (6)
  - DYSPHONIA [None]
  - CONSTIPATION [None]
  - PALMAR-PLANTAR ERYTHRODYSAESTHESIA SYNDROME [None]
  - HEPATIC FUNCTION ABNORMAL [None]
  - PYREXIA [None]
  - ERYTHEMA MULTIFORME [None]
